FAERS Safety Report 4537261-4 (Version None)
Quarter: 2004Q4

REPORT INFORMATION
  Report Type: 
  Country: None (occurrence: None)
  Receive Date: 20041223
  Receipt Date: 20041201
  Transmission Date: 20050328
  Serious: Yes (Disabling)
  Sender: FDA-Public Use
  Company Number: PHHO2004JP17161

PATIENT
  Age: 73 Year
  Sex: Female
  Weight: 45 kg

DRUGS (3)
  1. DIOVAN [Suspect]
     Indication: HYPERTENSION
     Dosage: UNK, UNK
     Route: 048
     Dates: start: 20030826
  2. CALBLOCK [Suspect]
     Indication: HYPERTENSION
     Route: 048
     Dates: start: 20030917
  3. TENORMIN [Concomitant]
     Dates: start: 20040224, end: 20040225

REACTIONS (4)
  - CRANIAL NERVE PARALYSIS [None]
  - DYSARTHRIA [None]
  - HEMIPLEGIA [None]
  - THROMBOTIC STROKE [None]
